FAERS Safety Report 18260393 (Version 2)
Quarter: 2021Q3

REPORT INFORMATION
  Report Type: Other
  Country: FR (occurrence: FR)
  Receive Date: 20200914
  Receipt Date: 20210701
  Transmission Date: 20211014
  Serious: Yes (Other)
  Sender: FDA-Public Use
  Company Number: FR-ROCHE-2675271

PATIENT

DRUGS (5)
  1. RITUXIMAB. [Suspect]
     Active Substance: RITUXIMAB
     Indication: FOCAL SEGMENTAL GLOMERULOSCLEROSIS
     Route: 041
  2. CYCLOSPORINE. [Suspect]
     Active Substance: CYCLOSPORINE
     Indication: FOCAL SEGMENTAL GLOMERULOSCLEROSIS
     Dosage: UNK
     Route: 065
  3. CYCLOSPORINE. [Suspect]
     Active Substance: CYCLOSPORINE
     Indication: GLOMERULOSCLEROSIS
  4. RITUXIMAB. [Suspect]
     Active Substance: RITUXIMAB
     Indication: DISEASE RECURRENCE
     Route: 041
  5. RITUXIMAB. [Suspect]
     Active Substance: RITUXIMAB
     Indication: GLOMERULOSCLEROSIS
     Dosage: 2 INJECTIONS OF 1 G
     Route: 041

REACTIONS (4)
  - Focal segmental glomerulosclerosis [Unknown]
  - Drug ineffective [Unknown]
  - Intentional product use issue [Unknown]
  - Disease recurrence [Unknown]
